FAERS Safety Report 23816593 (Version 4)
Quarter: 2024Q3

REPORT INFORMATION
  Report Type: Spontaneous
  Country: US (occurrence: US)
  Receive Date: 20240503
  Receipt Date: 20240710
  Transmission Date: 20241017
  Serious: Yes (Other)
  Sender: BRISTOL MYERS SQUIBB
  Company Number: US-BRISTOL-MYERS SQUIBB COMPANY-2024-067297

PATIENT
  Age: 67 Year
  Sex: Female

DRUGS (3)
  1. REVLIMID [Suspect]
     Active Substance: LENALIDOMIDE
     Indication: Myelodysplastic syndrome
     Route: 048
  2. REVLIMID [Suspect]
     Active Substance: LENALIDOMIDE
     Dosage: 14 DAYS OF 28-DAY CYCLE
  3. REVLIMID [Suspect]
     Active Substance: LENALIDOMIDE
     Dosage: 7 DAYS ON AND 7 DAYS OFF AND REPEAT
     Route: 048

REACTIONS (11)
  - Full blood count decreased [Unknown]
  - Off label use [Unknown]
  - Fatigue [Unknown]
  - Constipation [Unknown]
  - Diarrhoea [Unknown]
  - Contusion [Unknown]
  - Carpal tunnel syndrome [Unknown]
  - Angiopathy [Unknown]
  - Muscle atrophy [Unknown]
  - Malaise [Unknown]
  - Asthenia [Unknown]
